FAERS Safety Report 9338881 (Version 2)
Quarter: 2013Q4

REPORT INFORMATION
  Report Type: Spontaneous
  Country: FR (occurrence: FR)
  Receive Date: 20130610
  Receipt Date: 20131212
  Transmission Date: 20140711
  Serious: Yes (Hospitalization, Other)
  Sender: FDA-Public Use
  Company Number: FR-009507513-1304FRA014427

PATIENT
  Age: 64 Year
  Sex: Female
  Weight: 65 kg

DRUGS (11)
  1. VICTRELIS [Suspect]
     Indication: HEPATITIS C
     Dosage: 800 MG, TID
     Route: 048
     Dates: start: 20130118, end: 20130503
  2. COPEGUS [Suspect]
     Indication: HEPATITIS C
     Dosage: 1000 MG, QD
     Route: 048
     Dates: start: 20121123, end: 20130514
  3. PEGASYS [Suspect]
     Indication: HEPATITIS C
     Dosage: 180 MICROGRAM, QW
     Route: 058
     Dates: start: 20121123, end: 20130514
  4. LEVOTHYROX [Interacting]
     Indication: HYPOTHYROIDISM
     Dosage: 75 MICROGRAM, QD
     Route: 048
     Dates: start: 2009
  5. CYNOMEL [Concomitant]
     Dosage: 25 MICROGRAM, UNK
  6. ESOMEPRAZOLE [Concomitant]
     Indication: DUODENAL ULCER
     Dosage: 40 MG, QD
     Route: 048
     Dates: start: 20121002
  7. ACETAMINOPHEN [Concomitant]
     Dosage: 1 G, TID
  8. LEVOCETIRIZINE [Concomitant]
     Indication: PRURITUS
     Dosage: 5 MG, QD
     Route: 048
     Dates: start: 20130410
  9. HYDROXYZINE [Concomitant]
     Indication: PRURITUS
     Dosage: 25 MG, QD
     Route: 048
     Dates: start: 20130410
  10. LOCOID [Concomitant]
     Indication: PRURITUS
     Dosage: 1 UNK, UNK
     Dates: start: 20130410
  11. NEORECORMON [Concomitant]
     Dosage: 300000 IU, QW
     Dates: start: 20130313, end: 20130402

REACTIONS (4)
  - Toxic skin eruption [Recovering/Resolving]
  - Hypothyroidism [Recovering/Resolving]
  - Drug interaction [Unknown]
  - Anaemia [Recovered/Resolved]
